FAERS Safety Report 6393116-4 (Version None)
Quarter: 2009Q4

REPORT INFORMATION
  Report Type: 
  Country: None (occurrence: None)
  Receive Date: 20091008
  Receipt Date: 20070919
  Transmission Date: 20100525
  Serious: Yes (Other)
  Sender: FDA-Public Use
  Company Number: US-ASTRAZENECA-2006UW22037

PATIENT
  Age: 18520 Day
  Sex: Male
  Weight: 93.9 kg

DRUGS (18)
  1. SEROQUEL [Suspect]
     Indication: BIPOLAR DISORDER
     Route: 048
     Dates: start: 20020101, end: 20070101
  2. SEROQUEL [Suspect]
     Indication: SCHIZOPHRENIA
     Route: 048
     Dates: start: 20020101, end: 20070101
  3. SEROQUEL [Suspect]
     Indication: DEPRESSION
     Route: 048
     Dates: start: 20020101, end: 20070101
  4. SEROQUEL [Suspect]
     Dosage: 200 MG ONE-HALF TABLET DAILY
     Route: 048
     Dates: start: 20041109, end: 20071115
  5. SEROQUEL [Suspect]
     Dosage: 200 MG ONE-HALF TABLET DAILY
     Route: 048
     Dates: start: 20041109, end: 20071115
  6. SEROQUEL [Suspect]
     Dosage: 200 MG ONE-HALF TABLET DAILY
     Route: 048
     Dates: start: 20041109, end: 20071115
  7. HALDOL [Concomitant]
  8. CARVEDILOL [Concomitant]
     Indication: CARDIAC DISORDER
     Dosage: 25-37.5 MG
     Route: 048
     Dates: start: 20041109
  9. LANOXIN [Concomitant]
     Indication: CARDIAC DISORDER
     Dosage: 0.25 - 25 MG QD
     Route: 048
     Dates: start: 20041109
  10. DIVALPROEX SODIUM [Concomitant]
     Dosage: 500 MG THREE TIMES A DAY AT BEDTIMES, 1500 MG QD
     Dates: start: 20041109
  11. FUROSEMIDE [Concomitant]
     Indication: FLUID IMBALANCE
     Route: 048
     Dates: start: 20041109
  12. GEMFIBROZIL [Concomitant]
     Indication: BLOOD TRIGLYCERIDES
     Dosage: 600 MG TWICE A DAY 30 MINUTES BEFORE MEALS
     Route: 048
     Dates: start: 20041109
  13. LISINOPRIL [Concomitant]
     Indication: BLOOD PRESSURE
     Dosage: 10-20 MG
     Route: 048
     Dates: start: 20041109
  14. PRIAMPEXOLE [Concomitant]
     Indication: RESTLESS LEGS SYNDROME
     Dosage: 0.125 - 0.25 MG AT BEDTIME
     Route: 048
     Dates: start: 20041109
  15. SIMVASTATIN [Concomitant]
     Indication: BLOOD CHOLESTEROL
     Dosage: 80 MG ONE-HALF AT BEDTIME
     Route: 048
     Dates: start: 20041109
  16. TRAZODONE [Concomitant]
     Dosage: 100 MG ONE-HALF DAILY
     Route: 048
     Dates: start: 20041109
  17. COUMADIN [Concomitant]
     Indication: CLOT RETRACTION
     Dosage: 1-8 MG
     Route: 048
     Dates: start: 20041109
  18. ARIPIPRAZOLE [Concomitant]
     Indication: THOUGHT BLOCKING
     Dosage: 10 MG ONE-HALF EVERY MORNING
     Route: 048
     Dates: start: 20061114

REACTIONS (5)
  - DIABETES MELLITUS [None]
  - DIABETIC NEUROPATHY [None]
  - MONONEUROPATHY [None]
  - NEUROPATHY PERIPHERAL [None]
  - TYPE 2 DIABETES MELLITUS [None]
